FAERS Safety Report 24210421 (Version 1)
Quarter: 2024Q3

REPORT INFORMATION
  Report Type: Spontaneous
  Country: US (occurrence: US)
  Receive Date: 20240814
  Receipt Date: 20240814
  Transmission Date: 20241017
  Serious: Yes (Death)
  Sender: RECORDATI
  Company Number: US-RECORDATI RARE DISEASE INC.-2024006105

PATIENT

DRUGS (1)
  1. CARBAGLU [Suspect]
     Active Substance: CARGLUMIC ACID
     Indication: Product used for unknown indication
     Dosage: THREE 200 MG TABLET EVERY MORNING, THREE 200 MG TABLETS EVERY AFTERNOON, TWO 200 MG TABLETS EVERY EV
     Route: 048

REACTIONS (1)
  - Death [Fatal]

NARRATIVE: CASE EVENT DATE: 20240803
